FAERS Safety Report 5630320-4 (Version None)
Quarter: 2008Q1

REPORT INFORMATION
  Report Type: 
  Country: None (occurrence: None)
  Receive Date: 20080213
  Receipt Date: 20080206
  Transmission Date: 20080703
  Serious: Yes (Hospitalization)
  Sender: FDA-Public Use
  Company Number: 2008BI001862

PATIENT
  Age: 82 Year
  Sex: Male

DRUGS (2)
  1. ZEVALIN [Suspect]
     Indication: NON-HODGKIN'S LYMPHOMA
     Dosage: 1X;IV
     Route: 042
     Dates: start: 20080108, end: 20080108
  2. RITUXAN [Concomitant]

REACTIONS (2)
  - DEEP VEIN THROMBOSIS [None]
  - PLEURAL EFFUSION [None]
